FAERS Safety Report 5010889-3 (Version None)
Quarter: 2006Q2

REPORT INFORMATION
  Report Type: 
  Country: None (occurrence: None)
  Receive Date: 20060523
  Receipt Date: 20060515
  Transmission Date: 20061013
  Serious: Yes (Death, Hospitalization)
  Sender: FDA-Public Use
  Company Number: 2006BI006965

PATIENT
  Age: 51 Year
  Sex: Female

DRUGS (1)
  1. AVONEX [Suspect]
     Indication: MULTIPLE SCLEROSIS
     Dosage: IM
     Route: 030
     Dates: start: 20050101, end: 20060502

REACTIONS (6)
  - BONE NEOPLASM MALIGNANT [None]
  - DYSPNOEA [None]
  - LUNG NEOPLASM MALIGNANT [None]
  - LYMPHOMA [None]
  - NEOPLASM MALIGNANT [None]
  - PNEUMONIA [None]
